FAERS Safety Report 4518949-8 (Version None)
Quarter: 2004Q4

REPORT INFORMATION
  Report Type: 
  Country: None (occurrence: None)
  Receive Date: 20041201
  Receipt Date: 20041118
  Transmission Date: 20050328
  Serious: Yes (Hospitalization, Congenital Anomaly)
  Sender: FDA-Public Use
  Company Number: 2004095233

PATIENT
  Age: 0 Day
  Sex: Female

DRUGS (3)
  1. NEURONTIN [Suspect]
     Indication: ILL-DEFINED DISORDER
     Dosage: 1.8 GRAM, PLACENTAL
     Route: 064
  2. LORAZEPAM [Suspect]
     Indication: ILL-DEFINED DISORDER
     Dosage: 2 MG, PLACENTAL
     Route: 064
  3. TOPIRAMATE [Suspect]
     Indication: ILL-DEFINED DISORDER
     Dosage: 100 MG, PLACENTAL
     Route: 064

REACTIONS (2)
  - CONGENITAL VENTRICULAR SEPTAL DEFECT [None]
  - DRUG EXPOSURE DURING PREGNANCY [None]
